FAERS Safety Report 16995222 (Version 1)
Quarter: 2019Q4

REPORT INFORMATION
  Report Type: Spontaneous
  Country: US (occurrence: US)
  Receive Date: 20191105
  Receipt Date: 20191105
  Transmission Date: 20200122
  Serious: Yes (Death, Other)
  Sender: FDA-Public Use
  Company Number: US-TAKEDA-2019TUS062323

PATIENT

DRUGS (1)
  1. ULORIC [Suspect]
     Active Substance: FEBUXOSTAT
     Indication: GOUT
     Dosage: UNK
     Route: 048
     Dates: start: 2016

REACTIONS (4)
  - Acute myocardial infarction [Fatal]
  - Left ventricular failure [Fatal]
  - Acute kidney injury [Fatal]
  - Dyspnoea [Fatal]

NARRATIVE: CASE EVENT DATE: 2017
